FAERS Safety Report 18664780 (Version 1)
Quarter: 2020Q4

REPORT INFORMATION
  Report Type: Spontaneous
  Country: CN (occurrence: CN)
  Receive Date: 20201225
  Receipt Date: 20201225
  Transmission Date: 20210114
  Serious: Yes (Hospitalization, Other)
  Sender: FDA-Public Use
  Company Number: CN-ASTRAZENECA-2020SF73161

PATIENT
  Age: 39 Year
  Sex: Male
  Weight: 76 kg

DRUGS (1)
  1. ESOMEPRAZOLE SODIUM. [Suspect]
     Active Substance: ESOMEPRAZOLE SODIUM
     Indication: GASTROINTESTINAL HAEMORRHAGE
     Route: 042
     Dates: start: 20201030, end: 20201113

REACTIONS (4)
  - Agitation [Unknown]
  - Muscle rigidity [Recovered/Resolved]
  - Blood pressure abnormal [Unknown]
  - Restlessness [Recovering/Resolving]

NARRATIVE: CASE EVENT DATE: 20201113
